FAERS Safety Report 10746137 (Version 2)
Quarter: 2015Q1

REPORT INFORMATION
  Report Type: Spontaneous
  Country: US (occurrence: US)
  Receive Date: 20150128
  Receipt Date: 20150225
  Transmission Date: 20150721
  Serious: Yes (Hospitalization)
  Sender: FDA-Public Use
  Company Number: US-UNITED THERAPEUTICS-UNT-2015-000754

PATIENT
  Age: 51 Year
  Sex: Male
  Weight: 107.48 kg

DRUGS (3)
  1. ADCIRCA [Concomitant]
     Active Substance: TADALAFIL
     Indication: PRODUCT USED FOR UNKNOWN INDICATION
  2. ORENITRAM [Suspect]
     Active Substance: TREPROSTINIL
     Indication: PULMONARY ARTERIAL HYPERTENSION
     Dosage: 12.5 MG Q12H
     Route: 048
     Dates: start: 20150105
  3. ORENITRAM [Suspect]
     Active Substance: TREPROSTINIL
     Dosage: UNK
     Route: 048

REACTIONS (5)
  - Flushing [Unknown]
  - Diarrhoea [Unknown]
  - Dyspnoea [Unknown]
  - Hot flush [Unknown]
  - Headache [Unknown]

NARRATIVE: CASE EVENT DATE: 201501
